FAERS Safety Report 16753194 (Version 4)
Quarter: 2020Q1

REPORT INFORMATION
  Report Type: Report from Study
  Country: JP (occurrence: JP)
  Receive Date: 20190829
  Receipt Date: 20200307
  Transmission Date: 20200409
  Serious: Yes (Hospitalization)
  Sender: FDA-Public Use
  Company Number: JP-ROCHE-2395248

PATIENT
  Age: 45 Year
  Sex: Female
  Weight: 49 kg

DRUGS (41)
  1. MYCOPHENOLATE MOFETIL. [Suspect]
     Active Substance: MYCOPHENOLATE MOFETIL
     Route: 065
     Dates: start: 20190730, end: 20190827
  2. SOLU-MEDROL [Concomitant]
     Active Substance: METHYLPREDNISOLONE SODIUM SUCCINATE
     Route: 042
     Dates: start: 20190723, end: 20190723
  3. MYCOPHENOLATE MOFETIL. [Suspect]
     Active Substance: MYCOPHENOLATE MOFETIL
     Route: 065
     Dates: start: 20190727, end: 20190729
  4. TACROLIMUS MONOHYDRATE [Suspect]
     Active Substance: TACROLIMUS
     Indication: ABO INCOMPATIBILITY
     Route: 048
     Dates: start: 20190701, end: 20190708
  5. TACROLIMUS MONOHYDRATE [Suspect]
     Active Substance: TACROLIMUS
     Route: 048
     Dates: start: 20190720, end: 20190726
  6. PREDNISOLONE. [Suspect]
     Active Substance: PREDNISOLONE
     Indication: ABO INCOMPATIBILITY
     Route: 048
     Dates: start: 20190713, end: 20190713
  7. PREDNISOLONE. [Suspect]
     Active Substance: PREDNISOLONE
     Route: 048
     Dates: start: 20190808, end: 20190827
  8. MYCOPHENOLATE MOFETIL. [Suspect]
     Active Substance: MYCOPHENOLATE MOFETIL
     Route: 065
     Dates: start: 20190724, end: 20190726
  9. TACROLIMUS MONOHYDRATE [Suspect]
     Active Substance: TACROLIMUS
     Route: 048
     Dates: start: 20190727, end: 20190802
  10. PREDNISOLONE. [Suspect]
     Active Substance: PREDNISOLONE
     Route: 048
     Dates: start: 20190716, end: 20190730
  11. SOLU-MEDROL [Concomitant]
     Active Substance: METHYLPREDNISOLONE SODIUM SUCCINATE
     Route: 042
     Dates: start: 20190712, end: 20190712
  12. IBUPROFEN. [Concomitant]
     Active Substance: IBUPROFEN
     Route: 048
     Dates: start: 20190708, end: 20190708
  13. MYCOPHENOLATE MOFETIL. [Suspect]
     Active Substance: MYCOPHENOLATE MOFETIL
     Indication: ABO INCOMPATIBILITY
     Route: 065
     Dates: start: 20190702, end: 20190704
  14. MYCOPHENOLATE MOFETIL. [Suspect]
     Active Substance: MYCOPHENOLATE MOFETIL
     Route: 065
     Dates: start: 20190828
  15. RITUXIMAB. [Suspect]
     Active Substance: RITUXIMAB
     Route: 042
     Dates: start: 20190723, end: 20190723
  16. TACROLIMUS MONOHYDRATE [Suspect]
     Active Substance: TACROLIMUS
     Indication: PROPHYLAXIS AGAINST TRANSPLANT REJECTION
     Route: 048
     Dates: start: 20190625, end: 20190630
  17. TACROLIMUS MONOHYDRATE [Suspect]
     Active Substance: TACROLIMUS
     Route: 048
     Dates: start: 20190713, end: 20190717
  18. TACROLIMUS MONOHYDRATE [Suspect]
     Active Substance: TACROLIMUS
     Route: 048
     Dates: start: 20190803, end: 20190828
  19. PREDNISOLONE. [Suspect]
     Active Substance: PREDNISOLONE
     Route: 048
     Dates: start: 20190731, end: 20190807
  20. PREDNISOLONE. [Suspect]
     Active Substance: PREDNISOLONE
     Route: 048
     Dates: start: 20190828
  21. SOLU-MEDROL [Concomitant]
     Active Substance: METHYLPREDNISOLONE SODIUM SUCCINATE
     Route: 042
     Dates: start: 20190710, end: 20190710
  22. POLARAMINE [Concomitant]
     Active Substance: DEXCHLORPHENIRAMINE MALEATE
     Route: 042
     Dates: start: 20190708, end: 20190708
  23. POLARAMINE [Concomitant]
     Active Substance: DEXCHLORPHENIRAMINE MALEATE
     Route: 042
     Dates: start: 20190723, end: 20190723
  24. MYCOPHENOLATE MOFETIL. [Suspect]
     Active Substance: MYCOPHENOLATE MOFETIL
     Route: 065
     Dates: start: 20190705, end: 20190709
  25. RITUXIMAB. [Suspect]
     Active Substance: RITUXIMAB
     Indication: ABO INCOMPATIBILITY
     Route: 042
     Dates: start: 20190708, end: 20190708
  26. SOLU-MEDROL [Concomitant]
     Active Substance: METHYLPREDNISOLONE SODIUM SUCCINATE
     Route: 042
     Dates: start: 20190709, end: 20190709
  27. IBUPROFEN. [Concomitant]
     Active Substance: IBUPROFEN
     Route: 048
     Dates: start: 20190723, end: 20190723
  28. POLARAMINE [Concomitant]
     Active Substance: DEXCHLORPHENIRAMINE MALEATE
     Route: 042
     Dates: start: 20190625, end: 20190625
  29. BASILIXIMAB [Suspect]
     Active Substance: BASILIXIMAB
     Indication: ABO INCOMPATIBILITY
     Route: 042
     Dates: start: 20190709, end: 20190709
  30. RITUXIMAB. [Suspect]
     Active Substance: RITUXIMAB
     Indication: PROPHYLAXIS AGAINST TRANSPLANT REJECTION
     Route: 042
     Dates: start: 20190625, end: 20190625
  31. TACROLIMUS MONOHYDRATE [Suspect]
     Active Substance: TACROLIMUS
     Route: 048
     Dates: start: 20190709, end: 20190712
  32. TACROLIMUS MONOHYDRATE [Suspect]
     Active Substance: TACROLIMUS
     Route: 048
     Dates: start: 20190829
  33. PREDNISOLONE. [Suspect]
     Active Substance: PREDNISOLONE
     Indication: PROPHYLAXIS AGAINST TRANSPLANT REJECTION
     Route: 048
     Dates: start: 20190625, end: 20190708
  34. BASILIXIMAB [Suspect]
     Active Substance: BASILIXIMAB
     Indication: PROPHYLAXIS AGAINST TRANSPLANT REJECTION
     Route: 042
     Dates: start: 20190713, end: 20190713
  35. IBUPROFEN. [Concomitant]
     Active Substance: IBUPROFEN
     Route: 048
     Dates: start: 20190625, end: 20190625
  36. MYCOPHENOLATE MOFETIL. [Suspect]
     Active Substance: MYCOPHENOLATE MOFETIL
     Indication: PROPHYLAXIS AGAINST TRANSPLANT REJECTION
     Route: 048
     Dates: start: 20190625, end: 20190701
  37. TACROLIMUS MONOHYDRATE [Suspect]
     Active Substance: TACROLIMUS
     Route: 048
     Dates: start: 20190718, end: 20190719
  38. PREDNISOLONE. [Suspect]
     Active Substance: PREDNISOLONE
     Route: 048
     Dates: start: 20190714, end: 20190714
  39. PREDNISOLONE. [Suspect]
     Active Substance: PREDNISOLONE
     Route: 048
     Dates: start: 20190715, end: 20190715
  40. DAIPHEN [Concomitant]
     Active Substance: SULFAMETHOXAZOLE\TRIMETHOPRIM
     Route: 048
     Dates: start: 20190717
  41. SOLU-MEDROL [Concomitant]
     Active Substance: METHYLPREDNISOLONE SODIUM SUCCINATE
     Route: 042
     Dates: start: 20190711, end: 20190711

REACTIONS (4)
  - Passenger lymphocyte syndrome [Recovering/Resolving]
  - Cytomegalovirus infection [Recovering/Resolving]
  - Off label use [Unknown]
  - Intentional product use issue [Unknown]

NARRATIVE: CASE EVENT DATE: 20190722
